FAERS Safety Report 6337212-6 (Version None)
Quarter: 2009Q3

REPORT INFORMATION
  Report Type: 
  Country: None (occurrence: None)
  Receive Date: 20090902
  Receipt Date: 20070619
  Transmission Date: 20100115
  Serious: Yes (Other)
  Sender: FDA-Public Use
  Company Number: US-ASTRAZENECA-2006UW10790

PATIENT
  Age: 19574 Day
  Sex: Male
  Weight: 92.1 kg

DRUGS (12)
  1. SEROQUEL [Suspect]
     Indication: DEPRESSION
     Route: 048
  2. ABILIFY [Concomitant]
  3. RISPERDAL [Concomitant]
  4. PLAVIX [Concomitant]
     Indication: CORONARY ARTERY DISEASE
     Route: 048
     Dates: start: 20040406
  5. PLAVIX [Concomitant]
     Indication: BLOOD PRESSURE
     Route: 048
     Dates: start: 20040406
  6. PLAVIX [Concomitant]
     Indication: ANTIPLATELET THERAPY
     Route: 048
     Dates: start: 20040406
  7. LISINOPRIL [Concomitant]
     Indication: BLOOD PRESSURE
     Dosage: 10 MG-40 MG DAILY
     Dates: start: 20040406
  8. INSULIN [Concomitant]
     Indication: DIABETES MELLITUS
     Dosage: 35 UNITS IN AM AND 20 UNITS IN PM
     Dates: start: 19940728
  9. ASPIRIN [Concomitant]
     Dosage: 81 MG-325 MG DAILY
     Route: 048
     Dates: start: 20040404
  10. WELLBUTRIN [Concomitant]
     Dates: start: 20040406
  11. LOPRESSOR [Concomitant]
     Indication: BLOOD PRESSURE
     Dates: start: 20040406
  12. METOPROLOL [Concomitant]
     Dosage: 50 MG-100 MG DAILY
     Route: 048
     Dates: start: 20040614

REACTIONS (4)
  - DIABETES MELLITUS [None]
  - DIABETIC NEUROPATHY [None]
  - INSULIN-REQUIRING TYPE 2 DIABETES MELLITUS [None]
  - PANCREATITIS [None]
